FAERS Safety Report 9722381 (Version 1)
Quarter: 2013Q4

REPORT INFORMATION
  Report Type: Report from Study
  Country: KR (occurrence: KR)
  Receive Date: 20131202
  Receipt Date: 20131202
  Transmission Date: 20140711
  Serious: Yes (Other)
  Sender: FDA-Public Use
  Company Number: KR-ASTRAZENECA-2013SE86256

PATIENT
  Age: 28 Year
  Sex: Female

DRUGS (1)
  1. PROPOFOL [Suspect]
     Route: 042

REACTIONS (2)
  - Drug abuse [Unknown]
  - Toxicity to various agents [Unknown]
